FAERS Safety Report 4740336-8 (Version None)
Quarter: 2005Q3

REPORT INFORMATION
  Report Type: 
  Country: None (occurrence: None)
  Receive Date: 20050810
  Receipt Date: 20050323
  Transmission Date: 20060218
  Serious: Yes (Hospitalization)
  Sender: FDA-Public Use
  Company Number: FR-ABBOTT-05P-056-0295024-01

PATIENT
  Sex: Female
  Weight: 55 kg

DRUGS (5)
  1. HUMIRA [Suspect]
     Indication: RHEUMATOID ARTHRITIS
     Route: 058
     Dates: start: 20040701, end: 20050307
  2. HUMIRA [Suspect]
     Route: 058
     Dates: start: 20050406
  3. HYDROXYCHLOROQUINE PHOSPHATE [Concomitant]
     Indication: DRUG USE FOR UNKNOWN INDICATION
  4. FARKALP [Concomitant]
     Indication: DRUG USE FOR UNKNOWN INDICATION
  5. COMMERCIAL HUMIRA [Concomitant]
     Indication: RHEUMATOID ARTHRITIS
     Route: 058
     Dates: start: 20031001, end: 20050307

REACTIONS (2)
  - COUGH [None]
  - PYREXIA [None]
